FAERS Safety Report 25885705 (Version 2)
Quarter: 2025Q4

REPORT INFORMATION
  Report Type: Spontaneous
  Country: GB (occurrence: GB)
  Receive Date: 20251006
  Receipt Date: 20251201
  Transmission Date: 20260117
  Serious: Yes (Other)
  Sender: PFIZER
  Company Number: GB-PFIZER INC-202500196702

PATIENT
  Sex: Male

DRUGS (1)
  1. ELRANATAMAB [Suspect]
     Active Substance: ELRANATAMAB
     Indication: Plasma cell myeloma
     Dosage: UNK

REACTIONS (2)
  - Second primary malignancy [Not Recovered/Not Resolved]
  - Hodgkin^s disease [Not Recovered/Not Resolved]
